FAERS Safety Report 4827040-2 (Version None)
Quarter: 2005Q4

REPORT INFORMATION
  Report Type: 
  Country: None (occurrence: None)
  Receive Date: 20051014
  Receipt Date: 20050706
  Transmission Date: 20060501
  Serious: No
  Sender: FDA-Public Use
  Company Number: 2005SP000698

PATIENT
  Age: 89 Year
  Sex: Male
  Weight: 72.5755 kg

DRUGS (4)
  1. LUNESTA [Suspect]
     Indication: INSOMNIA
     Dosage: 1 MG; HS; ORAL; 3 MG; HS; ORAL, 4 MG; HS; ORAL
     Route: 048
     Dates: start: 20050401, end: 20050401
  2. LUNESTA [Suspect]
     Indication: INSOMNIA
     Dosage: 1 MG; HS; ORAL; 3 MG; HS; ORAL, 4 MG; HS; ORAL
     Route: 048
     Dates: start: 20050401, end: 20050401
  3. LUNESTA [Suspect]
     Indication: INSOMNIA
     Dosage: 1 MG; HS; ORAL; 3 MG; HS; ORAL, 4 MG; HS; ORAL
     Route: 048
     Dates: start: 20050401, end: 20050401
  4. RESTORIL [Concomitant]

REACTIONS (2)
  - DRUG INEFFECTIVE [None]
  - INSOMNIA [None]
